FAERS Safety Report 7347448-3 (Version None)
Quarter: 2011Q1

REPORT INFORMATION
  Report Type: 
  Country: None (occurrence: None)
  Receive Date: 20110311
  Receipt Date: 20110307
  Transmission Date: 20110831
  Serious: Yes (Death)
  Sender: FDA-Public Use
  Company Number: PHHY2011US18871

PATIENT

DRUGS (1)
  1. ZOMETA [Suspect]
     Dosage: 04/05 MG/ML

REACTIONS (1)
  - DEATH [None]
